FAERS Safety Report 11135321 (Version 1)
Quarter: 2015Q2

REPORT INFORMATION
  Report Type: Spontaneous
  Country: BR (occurrence: BR)
  Receive Date: 20150525
  Receipt Date: 20150525
  Transmission Date: 20150821
  Serious: Yes (Other)
  Sender: FDA-Public Use
  Company Number: PHHY2015BR055743

PATIENT
  Age: 38 Year
  Sex: Female
  Weight: 75 kg

DRUGS (1)
  1. GLIVEC [Suspect]
     Active Substance: IMATINIB MESYLATE
     Indication: CHRONIC MYELOID LEUKAEMIA
     Dosage: 1 DF, QD
     Route: 048
     Dates: start: 2008

REACTIONS (5)
  - Pain [Recovering/Resolving]
  - Pruritus [Unknown]
  - White blood cell count increased [Unknown]
  - Dengue fever [Recovered/Resolved]
  - Platelet count decreased [Unknown]

NARRATIVE: CASE EVENT DATE: 20150419
